FAERS Safety Report 9150098 (Version 2)
Quarter: 2013Q1

REPORT INFORMATION
  Report Type: Spontaneous
  Country: US (occurrence: US)
  Receive Date: 20130308
  Receipt Date: 20130328
  Transmission Date: 20140127
  Serious: No
  Sender: FDA-Public Use
  Company Number: US-PFIZER INC-2013078747

PATIENT
  Age: 77 Year
  Sex: Female
  Weight: 74.83 kg

DRUGS (4)
  1. ZYVOX [Suspect]
     Indication: BACTERIAL INFECTION
     Dosage: 600 MG, 2X/DAY
     Route: 048
     Dates: start: 20130220, end: 20130228
  2. ZYVOX [Suspect]
     Dosage: 600 MG, 2X/DAY
     Route: 048
     Dates: start: 20130305
  3. ASPIRIN [Concomitant]
     Dosage: UNK, 1X/DAY
  4. FISH OIL [Concomitant]
     Dosage: UNK

REACTIONS (1)
  - Infection [Unknown]
